FAERS Safety Report 4631313-6 (Version None)
Quarter: 2005Q2

REPORT INFORMATION
  Report Type: 
  Country: None (occurrence: None)
  Receive Date: 20050408
  Receipt Date: 20050330
  Transmission Date: 20051028
  Serious: Yes (Death)
  Sender: FDA-Public Use
  Company Number: US-MERCK-0503USA05321

PATIENT
  Age: 43 Year
  Sex: Male

DRUGS (3)
  1. VORICONAZOLE [Suspect]
     Route: 042
  2. CANCIDAS [Suspect]
     Indication: FUNGAEMIA
     Route: 042
  3. AMPHOTERICIN B [Concomitant]
     Route: 065

REACTIONS (2)
  - DEATH [None]
  - DRUG RESISTANCE [None]
